FAERS Safety Report 7363313-X (Version None)
Quarter: 2011Q1

REPORT INFORMATION
  Report Type: 
  Country: None (occurrence: None)
  Receive Date: 20110321
  Receipt Date: 20110308
  Transmission Date: 20110831
  Serious: Yes (Hospitalization)
  Sender: FDA-Public Use
  Company Number: US-JNJFOC-20101003042

PATIENT
  Sex: Female

DRUGS (4)
  1. INFLIXIMAB, RECOMBINANT [Suspect]
     Route: 042
  2. MULTI-VITAMINS [Concomitant]
  3. INFLIXIMAB, RECOMBINANT [Suspect]
     Indication: CROHN'S DISEASE
     Route: 042
  4. IRON [Concomitant]

REACTIONS (2)
  - ABDOMINAL PAIN [None]
  - ARTHRITIS [None]
